FAERS Safety Report 25187616 (Version 1)
Quarter: 2025Q2

REPORT INFORMATION
  Report Type: Spontaneous
  Country: CN (occurrence: CN)
  Receive Date: 20250411
  Receipt Date: 20250411
  Transmission Date: 20250717
  Serious: Yes (Hospitalization, Other)
  Sender: PURACAP
  Company Number: CN-PURACAP-CN-2025EPCLIT00412

PATIENT
  Age: 7 Year
  Sex: Female
  Weight: 28 kg

DRUGS (3)
  1. NAPROXEN SODIUM [Suspect]
     Active Substance: NAPROXEN SODIUM
     Indication: Respiratory tract infection
     Route: 048
  2. PRANOPROFEN [Suspect]
     Active Substance: PRANOPROFEN
     Indication: Product used for unknown indication
     Route: 065
  3. SPIRAMYCIN [Concomitant]
     Active Substance: SPIRAMYCIN
     Indication: Respiratory tract infection
     Route: 048

REACTIONS (2)
  - Toxic epidermal necrolysis [Recovered/Resolved]
  - Product use in unapproved indication [Unknown]
